FAERS Safety Report 24159500 (Version 2)
Quarter: 2024Q3

REPORT INFORMATION
  Report Type: Spontaneous
  Country: JP (occurrence: JP)
  Receive Date: 20240731
  Receipt Date: 20240815
  Transmission Date: 20241017
  Serious: No
  Sender: FERRING
  Company Number: JP-ferring-EVA202401049FERRINGPH

PATIENT

DRUGS (10)
  1. NOCDURNA [Suspect]
     Active Substance: DESMOPRESSIN ACETATE
     Indication: Nocturia
     Dosage: 25 UG, 1 TIME DAILY
     Route: 048
     Dates: start: 20240615
  2. ASPIRIN [Concomitant]
     Active Substance: ASPIRIN
  3. TADALAFIL [Concomitant]
     Active Substance: TADALAFIL
  4. ARICEPT [Concomitant]
     Active Substance: DONEPEZIL HYDROCHLORIDE
  5. MEMANTINE HYDROCHLORIDE [Concomitant]
     Active Substance: MEMANTINE HYDROCHLORIDE
  6. NIZATIDINE [Concomitant]
     Active Substance: NIZATIDINE
  7. ETIZOLAM [Concomitant]
     Active Substance: ETIZOLAM
  8. SILODOSIN [Concomitant]
     Active Substance: SILODOSIN
  9. TRIAZOLAM [Concomitant]
     Active Substance: TRIAZOLAM
  10. OZEMPIC [Concomitant]
     Active Substance: SEMAGLUTIDE

REACTIONS (1)
  - Coronavirus infection [Unknown]

NARRATIVE: CASE EVENT DATE: 20240706
